FAERS Safety Report 20954566 (Version 2)
Quarter: 2023Q2

REPORT INFORMATION
  Report Type: Spontaneous
  Country: US (occurrence: US)
  Receive Date: 20220614
  Receipt Date: 20230619
  Transmission Date: 20230721
  Serious: No
  Sender: FDA-Public Use
  Company Number: US-PFM-2021-12411

PATIENT
  Sex: Male
  Weight: 8.608 kg

DRUGS (1)
  1. HEMANGEOL [Suspect]
     Active Substance: PROPRANOLOL HYDROCHLORIDE
     Indication: Haemangioma
     Dosage: 2.5 ML, BID (2/DAY)
     Route: 048

REACTIONS (5)
  - Rash [Unknown]
  - Feeling cold [Unknown]
  - Somnolence [Unknown]
  - Blood pressure decreased [Unknown]
  - Urticaria [Unknown]
